FAERS Safety Report 21887742 (Version 2)
Quarter: 2023Q1

REPORT INFORMATION
  Report Type: Report from Study
  Country: US (occurrence: US)
  Receive Date: 20230120
  Receipt Date: 20230313
  Transmission Date: 20230418
  Serious: No
  Sender: FDA-Public Use
  Company Number: US-ABBVIE-4276060

PATIENT
  Sex: Male

DRUGS (2)
  1. VENCLEXTA [Suspect]
     Active Substance: VENETOCLAX
     Indication: Chronic lymphocytic leukaemia
     Dosage: 0.25 DAYS
     Route: 048
     Dates: start: 20221022
  2. VENCLEXTA [Suspect]
     Active Substance: VENETOCLAX
     Indication: Chronic lymphocytic leukaemia
     Route: 048
     Dates: start: 202210

REACTIONS (4)
  - Attention deficit hyperactivity disorder [Unknown]
  - Diarrhoea [Unknown]
  - Amnesia [Unknown]
  - Vestibular disorder [Unknown]
